FAERS Safety Report 10159497 (Version 2)
Quarter: 2014Q2

REPORT INFORMATION
  Report Type: Spontaneous
  Country: US (occurrence: None)
  Receive Date: 20140506
  Receipt Date: 20140515
  Transmission Date: 20141212
  Serious: Yes (Other)
  Sender: FDA-Public Use
  Company Number: AUR-APL-2014-05233

PATIENT
  Age: 41 Year
  Sex: Male

DRUGS (3)
  1. FLUCONAZOLE [Suspect]
     Indication: PROPHYLAXIS
  2. ACICLOVIR (ACICLOVIR) [Concomitant]
  3. LEVOFLOXACIN (LEVOFLOACIN) [Concomitant]

REACTIONS (3)
  - Meningitis cryptococcal [None]
  - Encephalitis [None]
  - Respiratory tract infection [None]
